FAERS Safety Report 16882925 (Version 2)
Quarter: 2019Q4

REPORT INFORMATION
  Report Type: Spontaneous
  Country: IT (occurrence: IT)
  Receive Date: 20191004
  Receipt Date: 20191213
  Transmission Date: 20200122
  Serious: Yes (Hospitalization)
  Sender: FDA-Public Use
  Company Number: IT-ACCORD-156395

PATIENT
  Age: 17 Year
  Sex: Female

DRUGS (2)
  1. FLUOXETINE [Concomitant]
     Active Substance: FLUOXETINE HYDROCHLORIDE
  2. QUETIAPINE. [Suspect]
     Active Substance: QUETIAPINE
     Route: 048

REACTIONS (4)
  - Substance abuse [Unknown]
  - Somnolence [Not Recovered/Not Resolved]
  - Ataxia [Not Recovered/Not Resolved]
  - Suicide attempt [Unknown]

NARRATIVE: CASE EVENT DATE: 20190328
